FAERS Safety Report 10026744 (Version 1)
Quarter: 2014Q1

REPORT INFORMATION
  Report Type: Spontaneous
  Country: GB (occurrence: None)
  Receive Date: 20140318
  Receipt Date: 20140318
  Transmission Date: 20141002
  Serious: Yes (Death)
  Sender: FDA-Public Use
  Company Number: 2014P1002015

PATIENT
  Age: 58 Year
  Sex: Male

DRUGS (9)
  1. SODIUM CHLORIDE [Suspect]
     Indication: PANCYTOPENIA
     Route: 042
  2. SODIUM CHLORIDE [Suspect]
     Indication: PNEUMONIA
     Route: 042
  3. TAZOCIN [Suspect]
     Indication: PNEUMONIA
  4. ATENOLOL [Concomitant]
  5. LISINOPRIL [Concomitant]
  6. METFORMIN [Concomitant]
  7. LEVOTHYROXINE [Concomitant]
  8. DEXAMETHASONE [Concomitant]
  9. GROWTH FACTOR FILGRASTIM [Concomitant]

REACTIONS (18)
  - Blood creatinine increased [None]
  - Blood bilirubin increased [None]
  - Coma scale abnormal [None]
  - Hypercalcaemia [None]
  - Hyperglycaemia [None]
  - Oxygen saturation decreased [None]
  - Blood pressure decreased [None]
  - Quadriplegia [None]
  - Locked-in syndrome [None]
  - General physical health deterioration [None]
  - Hypernatraemia [None]
  - Demyelination [None]
  - Body temperature decreased [None]
  - Blood alkaline phosphatase increased [None]
  - No therapeutic response [None]
  - Tri-iodothyronine decreased [None]
  - Thyroxine decreased [None]
  - Blood thyroid stimulating hormone decreased [None]
